FAERS Safety Report 16926540 (Version 2)
Quarter: 2021Q3

REPORT INFORMATION
  Report Type: Spontaneous
  Country: PL (occurrence: PL)
  Receive Date: 20191016
  Receipt Date: 20210825
  Transmission Date: 20211014
  Serious: Yes (Other)
  Sender: FDA-Public Use
  Company Number: PHHY2019PL226450

PATIENT
  Age: 6 Year
  Sex: Male

DRUGS (4)
  1. EPOETIN BETA [Suspect]
     Active Substance: ERYTHROPOIETIN
     Indication: PEARSON^S SYNDROME
     Dosage: UNK
     Route: 065
  2. DEFERASIROX. [Suspect]
     Active Substance: DEFERASIROX
     Indication: IRON OVERLOAD
     Dosage: UNK
     Route: 065
  3. FILGRASTIM [Suspect]
     Active Substance: FILGRASTIM
     Indication: BONE MARROW FAILURE
     Dosage: UNK
     Route: 065
  4. ELTROMBOPAG [Suspect]
     Active Substance: ELTROMBOPAG
     Indication: BONE MARROW FAILURE
     Dosage: 12.5 MG, QD (1.04MG/KG)
     Route: 065

REACTIONS (8)
  - Drug intolerance [Unknown]
  - Petechiae [Unknown]
  - Disease progression [Unknown]
  - Cataract [Unknown]
  - Contusion [Unknown]
  - Platelet count decreased [Unknown]
  - Pearson^s syndrome [Unknown]
  - Drug ineffective [Unknown]
